FAERS Safety Report 24232538 (Version 1)
Quarter: 2024Q3

REPORT INFORMATION
  Report Type: Spontaneous
  Country: US (occurrence: None)
  Receive Date: 20240820
  Receipt Date: 20240820
  Transmission Date: 20241017
  Serious: Yes (Other)
  Sender: Public
  Company Number: None

PATIENT
  Age: 63 Year
  Sex: Female
  Weight: 109.8 kg

DRUGS (1)
  1. COSENTYX [Suspect]
     Active Substance: SECUKINUMAB
     Indication: Hidradenitis
     Dosage: 300 MG Q WEEK 0-4 WEEKS SUBCUTANEOUS ?
     Route: 058
     Dates: start: 20240731, end: 20240817

REACTIONS (3)
  - Scab [None]
  - Ulcer [None]
  - Pain of skin [None]

NARRATIVE: CASE EVENT DATE: 20240817
